FAERS Safety Report 16049185 (Version 4)
Quarter: 2019Q2

REPORT INFORMATION
  Report Type: Spontaneous
  Country: US (occurrence: US)
  Receive Date: 20190307
  Receipt Date: 20190627
  Transmission Date: 20190711
  Serious: Yes (Other)
  Sender: FDA-Public Use
  Company Number: US-ASTRAZENECA-2018SF33702

PATIENT
  Age: 573 Month
  Sex: Male
  Weight: 82.6 kg

DRUGS (15)
  1. ASPIRIN. [Concomitant]
     Active Substance: ASPIRIN
     Route: 065
  2. LASIX [Concomitant]
     Active Substance: FUROSEMIDE
     Route: 065
  3. PRILOSEC [Suspect]
     Active Substance: OMEPRAZOLE MAGNESIUM
     Indication: GASTROOESOPHAGEAL REFLUX DISEASE
     Route: 048
     Dates: start: 200001, end: 201012
  4. IBUPROFEN. [Concomitant]
     Active Substance: IBUPROFEN
     Route: 065
  5. POTASSIUM CHLORIDE. [Concomitant]
     Active Substance: POTASSIUM CHLORIDE
     Route: 065
  6. PRILOSEC [Suspect]
     Active Substance: OMEPRAZOLE MAGNESIUM
     Indication: GASTROOESOPHAGEAL REFLUX DISEASE
     Dosage: GENERIC
     Route: 065
  7. FAMOTIDINE. [Concomitant]
     Active Substance: FAMOTIDINE
     Route: 065
  8. LOSARTAN POTASSIUM. [Concomitant]
     Active Substance: LOSARTAN POTASSIUM
     Route: 065
  9. PRILOSEC [Suspect]
     Active Substance: OMEPRAZOLE MAGNESIUM
     Indication: GASTROOESOPHAGEAL REFLUX DISEASE
     Route: 048
     Dates: start: 20000101, end: 20121231
  10. NORVASC [Concomitant]
     Active Substance: AMLODIPINE BESYLATE
     Route: 065
  11. VITAMIN D3 [Concomitant]
     Active Substance: CHOLECALCIFEROL
     Route: 065
  12. PROTONIX [Suspect]
     Active Substance: PANTOPRAZOLE SODIUM
     Indication: GASTROOESOPHAGEAL REFLUX DISEASE
     Route: 065
     Dates: start: 200003
  13. CALCITRIOL. [Concomitant]
     Active Substance: CALCITRIOL
     Route: 065
  14. PROTONIX [Suspect]
     Active Substance: PANTOPRAZOLE SODIUM
     Indication: GASTROOESOPHAGEAL REFLUX DISEASE
     Route: 065
     Dates: start: 201109, end: 201508
  15. ALLOPURINOL. [Concomitant]
     Active Substance: ALLOPURINOL
     Route: 065

REACTIONS (6)
  - End stage renal disease [Not Recovered/Not Resolved]
  - Nephrogenic anaemia [Unknown]
  - Chronic kidney disease [Not Recovered/Not Resolved]
  - Renal injury [Unknown]
  - Renal failure [Unknown]
  - Acute kidney injury [Not Recovered/Not Resolved]

NARRATIVE: CASE EVENT DATE: 200703
